FAERS Safety Report 10005959 (Version 1)
Quarter: 2014Q1

REPORT INFORMATION
  Report Type: Report from Study
  Country: PT (occurrence: PT)
  Receive Date: 20140313
  Receipt Date: 20140313
  Transmission Date: 20141002
  Serious: Yes (Life-Threatening, Hospitalization)
  Sender: FDA-Public Use
  Company Number: PT-ROCHE-1362611

PATIENT
  Age: 76 Year
  Sex: Female
  Weight: 65 kg

DRUGS (7)
  1. RANIBIZUMAB [Suspect]
     Indication: AGE-RELATED MACULAR DEGENERATION
     Route: 050
     Dates: start: 20070511
  2. RANIBIZUMAB [Suspect]
     Route: 050
     Dates: start: 20131002
  3. RANIBIZUMAB [Suspect]
     Route: 050
     Dates: end: 20140303
  4. CONCOR [Concomitant]
     Route: 065
     Dates: start: 2009, end: 20140212
  5. INIBACE [Concomitant]
     Route: 065
     Dates: start: 2002, end: 20140212
  6. LERCANIDIPINE HYDROCHLORIDE [Concomitant]
     Route: 065
     Dates: start: 2002, end: 20140212
  7. ACETYLSALICYLIC ACID [Concomitant]
     Route: 065
     Dates: start: 2002, end: 20140211

REACTIONS (1)
  - Cerebrovascular accident [Recovered/Resolved]
